FAERS Safety Report 10473628 (Version 2)
Quarter: 2014Q3

REPORT INFORMATION
  Report Type: Spontaneous
  Country: IT (occurrence: IT)
  Receive Date: 20140924
  Receipt Date: 20140924
  Transmission Date: 20150326
  Serious: Yes (Other)
  Sender: FDA-Public Use
  Company Number: IT-US-EMD SERONO, INC.-7320216

PATIENT
  Age: 32 Year
  Sex: Male

DRUGS (1)
  1. REBIF [Suspect]
     Active Substance: INTERFERON BETA-1A
     Indication: MULTIPLE SCLEROSIS
     Dosage: 0.5ML CARTRIDGE
     Route: 058

REACTIONS (3)
  - Skin reaction [Unknown]
  - Inappropriate schedule of drug administration [Unknown]
  - Movement disorder [Unknown]

NARRATIVE: CASE EVENT DATE: 20140908
